FAERS Safety Report 6772645-5 (Version None)
Quarter: 2010Q2

REPORT INFORMATION
  Report Type: 
  Country: None (occurrence: None)
  Receive Date: 20100616
  Receipt Date: 20091030
  Transmission Date: 20101027
  Serious: No
  Sender: FDA-Public Use
  Company Number: US-ASTRAZENECA-2009SE10187

PATIENT
  Age: 59 Year
  Sex: Female
  Weight: 78 kg

DRUGS (22)
  1. PULMICORT [Suspect]
     Route: 055
  2. PULMICORT [Suspect]
     Route: 055
  3. SPIRIVA [Concomitant]
  4. MEDICATION FOR HEART CONDITION [Concomitant]
  5. MULTI-VITAMIN [Concomitant]
  6. KLOR-CON [Concomitant]
  7. DIFLUCAN [Concomitant]
  8. ASPIRIN [Concomitant]
  9. ISMO [Concomitant]
  10. PREMARIN [Concomitant]
  11. SINGULAIR [Concomitant]
  12. SPIRIVA [Concomitant]
  13. VITAMIN D [Concomitant]
  14. LOVAZA [Concomitant]
  15. DITROPAN XL [Concomitant]
  16. LOPRESSOR [Concomitant]
  17. TIAZAC [Concomitant]
  18. GLUCOSAMINE-CHONDROITIN [Concomitant]
  19. XOPENEX [Concomitant]
  20. CALCIUM + D [Concomitant]
  21. DEMADEX [Concomitant]
  22. NITROGLYCERIN [Concomitant]

REACTIONS (6)
  - DYSPHAGIA [None]
  - DYSPHONIA [None]
  - LYMPHADENOPATHY [None]
  - OROPHARYNGEAL PAIN [None]
  - OROPHARYNGEAL PLAQUE [None]
  - THROAT TIGHTNESS [None]
